FAERS Safety Report 8561696-6 (Version None)
Quarter: 2012Q3

REPORT INFORMATION
  Report Type: 
  Country: None (occurrence: None)
  Receive Date: 20120802
  Receipt Date: 20120726
  Transmission Date: 20120928
  Serious: Yes (Other)
  Sender: FDA-Public Use
  Company Number: GB-UCBSA-062743

PATIENT
  Age: 49 Year
  Sex: Male
  Weight: 75 kg

DRUGS (6)
  1. FLUCONAZOLE [Interacting]
     Dosage: 50MG DAILY FOR 2 DAYS AND THEN STOPPED
     Route: 048
     Dates: start: 20120625, end: 20120601
  2. VEMURAFENIB [Interacting]
     Route: 048
     Dates: start: 20120701
  3. KEPPRA [Suspect]
  4. VEMURAFENIB [Interacting]
     Indication: MALIGNANT MELANOMA
     Route: 048
     Dates: start: 20120528, end: 20120625
  5. OMEPRAZOLE [Concomitant]
  6. FLUCONAZOLE [Interacting]
     Indication: ORAL CANDIDIASIS
     Dosage: 100MG DAILY
     Route: 048
     Dates: start: 20120622, end: 20120601

REACTIONS (5)
  - ALANINE AMINOTRANSFERASE INCREASED [None]
  - DRUG INTERACTION [None]
  - LIVER FUNCTION TEST ABNORMAL [None]
  - BLOOD ALKALINE PHOSPHATASE INCREASED [None]
  - NEUTROPENIA [None]
